FAERS Safety Report 5787517-2 (Version None)
Quarter: 2008Q2

REPORT INFORMATION
  Report Type: 
  Country: None (occurrence: None)
  Receive Date: 20080625
  Receipt Date: 20080616
  Transmission Date: 20081010
  Serious: Yes (Death)
  Sender: FDA-Public Use
  Company Number: JP-ABBOTT-08P-087-0458933-00

PATIENT
  Age: 77 Year
  Sex: Male

DRUGS (2)
  1. LEUPLIN SR FOR INJECTION KIT [Suspect]
     Indication: PROSTATE CANCER STAGE II
     Route: 058
     Dates: start: 20060706, end: 20080227
  2. LEUPRORELIN ACETATE 3.75 [Suspect]
     Indication: PROSTATE CANCER
     Dates: start: 20060407, end: 20060608

REACTIONS (1)
  - CARDIAC FAILURE ACUTE [None]
